FAERS Safety Report 6249909-7 (Version None)
Quarter: 2009Q2

REPORT INFORMATION
  Report Type: 
  Country: None (occurrence: None)
  Receive Date: 20090629
  Receipt Date: 20090618
  Transmission Date: 20091009
  Serious: Yes (Hospitalization)
  Sender: FDA-Public Use
  Company Number: US-BAXTER-2009BH010266

PATIENT
  Age: 65 Year
  Sex: Male

DRUGS (1)
  1. DIANEAL [Suspect]
     Indication: PERITONEAL DIALYSIS
     Route: 033
     Dates: end: 20090609

REACTIONS (5)
  - CHOLECYSTITIS ACUTE [None]
  - DIARRHOEA [None]
  - HELICOBACTER GASTRITIS [None]
  - PANCREATITIS [None]
  - PERITONITIS [None]
